FAERS Safety Report 18864028 (Version 2)
Quarter: 2021Q1

REPORT INFORMATION
  Report Type: Spontaneous
  Country: DE (occurrence: DE)
  Receive Date: 20210209
  Receipt Date: 20210216
  Transmission Date: 20210420
  Serious: Yes (Death)
  Sender: FDA-Public Use
  Company Number: DE-SA-2021SA040792

PATIENT
  Age: 83 Year

DRUGS (1)
  1. FABRAZYME [Suspect]
     Active Substance: AGALSIDASE BETA
     Dosage: UNK
     Route: 042
     Dates: end: 202012

REACTIONS (2)
  - General physical health deterioration [Unknown]
  - Cardiac pacemaker insertion [Fatal]

NARRATIVE: CASE EVENT DATE: 202012
